FAERS Safety Report 9353795 (Version 1)
Quarter: 2013Q2

REPORT INFORMATION
  Report Type: Spontaneous
  Country: FR (occurrence: FR)
  Receive Date: 20130618
  Receipt Date: 20130618
  Transmission Date: 20140414
  Serious: Yes (Hospitalization)
  Sender: FDA-Public Use
  Company Number: FR-EISAI INC-E3810-06489-SPO-FR

PATIENT
  Age: 44 Year
  Sex: Female

DRUGS (2)
  1. PARIET (RABEPRAZOLE) [Suspect]
     Route: 048
     Dates: start: 201301
  2. ETIFOXINE [Suspect]
     Route: 048
     Dates: start: 201301, end: 20130514

REACTIONS (2)
  - Malaise [Recovered/Resolved]
  - Dizziness [Recovered/Resolved]
